FAERS Safety Report 18604990 (Version 1)
Quarter: 2020Q4

REPORT INFORMATION
  Report Type: Spontaneous
  Country: US (occurrence: US)
  Receive Date: 20201211
  Receipt Date: 20201211
  Transmission Date: 20210114
  Serious: Yes (Death)
  Sender: FDA-Public Use
  Company Number: None

PATIENT
  Age: 73 Year
  Sex: Male

DRUGS (17)
  1. CARVEDILOL 25MG [Concomitant]
     Active Substance: CARVEDILOL
  2. FERROUS SULFATE EC 324MG [Concomitant]
  3. LISINOPRIL 10MG [Concomitant]
     Active Substance: LISINOPRIL
  4. AMLODIPINE [Concomitant]
     Active Substance: AMLODIPINE BESYLATE
  5. CAPECITABINE. [Suspect]
     Active Substance: CAPECITABINE
     Indication: LUNG NEOPLASM MALIGNANT
     Route: 048
     Dates: start: 20191217, end: 20201206
  6. IMODIUM 2MG [Concomitant]
  7. FINASTERIDE 5MG [Concomitant]
     Active Substance: FINASTERIDE
  8. ATORVASTATIN 10MG [Concomitant]
     Active Substance: ATORVASTATIN
  9. BACLOFEN 10MG [Concomitant]
     Active Substance: BACLOFEN
  10. LEVEMIR FLEXTOUCH PEN INJECTION 100UNITS/ML [Concomitant]
  11. ALLOPURINOL 100MG [Concomitant]
     Active Substance: ALLOPURINOL
  12. CALCIUM 600MG [Concomitant]
  13. VITAMIN B12 1000MCG [Concomitant]
  14. VITAMIN D 1000 IU [Concomitant]
  15. CLONIDINE 0.1MG [Concomitant]
     Active Substance: CLONIDINE
  16. DULOXETINE DR 20MG [Concomitant]
     Active Substance: DULOXETINE HYDROCHLORIDE
  17. TAMSULOSIN 0.4MG [Concomitant]
     Active Substance: TAMSULOSIN

REACTIONS (1)
  - Death [None]

NARRATIVE: CASE EVENT DATE: 20201206
